FAERS Safety Report 16415078 (Version 1)
Quarter: 2019Q2

REPORT INFORMATION
  Report Type: Spontaneous
  Country: US (occurrence: US)
  Receive Date: 20190611
  Receipt Date: 20190611
  Transmission Date: 20190711
  Serious: No
  Sender: FDA-Public Use
  Company Number: US-GLAXOSMITHKLINE-US2019103412

PATIENT
  Age: 66 Year
  Sex: Female

DRUGS (2)
  1. ABREVA [Suspect]
     Active Substance: DOCOSANOL
     Indication: ORAL HERPES
     Dosage: UNK UNK, TID
  2. ABREVA [Suspect]
     Active Substance: DOCOSANOL
     Dosage: UNK UNK, TID

REACTIONS (1)
  - Inappropriate schedule of product administration [Unknown]
